FAERS Safety Report 20543195 (Version 1)
Quarter: 2022Q1

REPORT INFORMATION
  Report Type: Spontaneous
  Country: US (occurrence: US)
  Receive Date: 20220302
  Receipt Date: 20220302
  Transmission Date: 20220423
  Serious: No
  Sender: FDA-Public Use
  Company Number: US-PFIZER INC-2021609824

PATIENT
  Age: 55 Year
  Sex: Female

DRUGS (2)
  1. EUCRISA [Suspect]
     Active Substance: CRISABOROLE
     Indication: Hand dermatitis
     Dosage: APPLY TO AFFECTED AREAS, 2X/DAY
     Route: 061
  2. EUCRISA [Suspect]
     Active Substance: CRISABOROLE
     Indication: Blepharitis

REACTIONS (3)
  - Skin haemorrhage [Unknown]
  - Off label use [Unknown]
  - Drug effective for unapproved indication [Unknown]
